FAERS Safety Report 10152530 (Version 1)
Quarter: 2014Q2

REPORT INFORMATION
  Report Type: Spontaneous
  Country: US (occurrence: None)
  Receive Date: 20140502
  Receipt Date: 20140502
  Transmission Date: 20141212
  Serious: No
  Sender: FDA-Public Use
  Company Number: None

PATIENT
  Age: 54 Year
  Sex: Female
  Weight: 78.93 kg

DRUGS (6)
  1. LUNESTA [Suspect]
     Indication: INSOMNIA
     Dosage: 3MG?30 ONE PO QHS?BY MOUTH
     Route: 048
     Dates: start: 20140423, end: 20140425
  2. CALCIUM+D [Concomitant]
  3. FISH OIL [Concomitant]
  4. MVI [Concomitant]
  5. FLAXSEED OIL [Concomitant]
  6. MEGA RED KRILL OIL [Concomitant]

REACTIONS (1)
  - Tremor [None]
